FAERS Safety Report 7759466-1 (Version None)
Quarter: 2011Q3

REPORT INFORMATION
  Report Type: 
  Country: None (occurrence: None)
  Receive Date: 20110919
  Receipt Date: 20110909
  Transmission Date: 20111222
  Serious: Yes (Hospitalization)
  Sender: FDA-Public Use
  Company Number: GB-ASTRAZENECA-2011SE54192

PATIENT
  Sex: Female

DRUGS (1)
  1. SEROQUEL XR [Suspect]
     Route: 048

REACTIONS (4)
  - INCORRECT DOSE ADMINISTERED [None]
  - FATIGUE [None]
  - MOOD ALTERED [None]
  - DRUG PRESCRIBING ERROR [None]
